FAERS Safety Report 9393822 (Version 1)
Quarter: 2013Q3

REPORT INFORMATION
  Report Type: Spontaneous
  Country: TR (occurrence: TR)
  Receive Date: 20130710
  Receipt Date: 20130710
  Transmission Date: 20140515
  Serious: Yes (Other)
  Sender: FDA-Public Use
  Company Number: TR-TEVA-416794ISR

PATIENT
  Age: 20 Year
  Sex: Male

DRUGS (6)
  1. DOXORUBICIN [Suspect]
     Indication: HEPATOCELLULAR CARCINOMA
     Route: 013
  2. OMNIPAQUE [Suspect]
     Indication: HEPATOCELLULAR CARCINOMA
     Route: 013
  3. TRAMADOL [Concomitant]
     Indication: ANALGESIC THERAPY
     Dosage: 200 MILLIGRAM DAILY; ADMINISTERED BEFORE EMBOLISATION
  4. DEXAMETHASONE [Concomitant]
     Indication: OEDEMA
     Dosage: 20 MILLIGRAM DAILY; ADMINISTERED BEFORE EMBOLISATION; TO MINIMISE TISSUE OEDEMA
  5. DEXAMETHASONE [Concomitant]
     Indication: PROPHYLAXIS
  6. RANITIDINE [Concomitant]
     Indication: PROPHYLAXIS AGAINST GASTROINTESTINAL ULCER
     Dosage: 50 MILLIGRAM DAILY; ADMINISTERED BEFORE EMBOLISATION; FOR GASTRIC PROTECTION

REACTIONS (2)
  - Cholecystitis acute [Recovered/Resolved with Sequelae]
  - Ischaemia [Recovered/Resolved with Sequelae]
